FAERS Safety Report 9384458 (Version 2)
Quarter: 2013Q3

REPORT INFORMATION
  Report Type: Spontaneous
  Country: FR (occurrence: FR)
  Receive Date: 20130705
  Receipt Date: 20130801
  Transmission Date: 20140515
  Serious: Yes (Life-Threatening, Hospitalization)
  Sender: FDA-Public Use
  Company Number: FR-009507513-1306FRA013636

PATIENT
  Age: 65 Year
  Sex: Female

DRUGS (6)
  1. ISENTRESS [Suspect]
     Indication: HIV INFECTION
     Dosage: UNK
     Dates: start: 20130430, end: 20130521
  2. CEFTRIAXONE SODIUM [Suspect]
     Indication: BODY TEMPERATURE INCREASED
     Dosage: UNK
     Route: 042
     Dates: start: 20130518, end: 20130518
  3. AUGMENTIN [Suspect]
     Indication: SUPERINFECTION
     Dosage: UNK
     Dates: start: 20130514, end: 20130518
  4. TIBERAL [Suspect]
     Dosage: UNK
     Route: 042
     Dates: start: 20130508, end: 20130511
  5. TRUVADA [Suspect]
     Indication: HIV INFECTION
     Dosage: UNK
     Dates: start: 20130430, end: 20130521
  6. COUMADIN [Concomitant]
     Indication: ANTICOAGULANT THERAPY
     Route: 048

REACTIONS (1)
  - Toxic skin eruption [Recovered/Resolved]
